FAERS Safety Report 19197818 (Version 1)
Quarter: 2021Q2

REPORT INFORMATION
  Report Type: Spontaneous
  Country: US (occurrence: US)
  Receive Date: 20210429
  Receipt Date: 20210429
  Transmission Date: 20210717
  Serious: No
  Sender: FDA-Public Use
  Company Number: US-PERRIGO-20US010479

PATIENT
  Age: 50 Year
  Sex: Female
  Weight: 192.74 kg

DRUGS (3)
  1. ANTIHYPERTENSIVES [Concomitant]
     Active Substance: UNSPECIFIED INGREDIENT
     Indication: HYPERTENSION
     Dosage: UNK
     Route: 065
  2. MICONAZOLE 3 COMBINATION PACK [Suspect]
     Active Substance: MICONAZOLE NITRATE
     Indication: VULVOVAGINAL PRURITUS
     Dosage: 200 MG, QD
     Route: 067
     Dates: start: 20200625, end: 20200626
  3. MICONAZOLE 3 COMBINATION PACK [Suspect]
     Active Substance: MICONAZOLE NITRATE
     Indication: VULVOVAGINAL PRURITUS
     Dosage: 1 APPLICATION, QD
     Route: 061
     Dates: start: 20200625, end: 20200626

REACTIONS (11)
  - Chemical burn [Recovering/Resolving]
  - Skin abrasion [Recovered/Resolved]
  - Vulvovaginal burning sensation [Recovering/Resolving]
  - Vulvovaginal pain [Recovering/Resolving]
  - Stress [Recovering/Resolving]
  - Blood pressure increased [Recovered/Resolved]
  - Hypersensitivity [Recovering/Resolving]
  - Blood glucose increased [Recovering/Resolving]
  - Haemorrhoids [Recovered/Resolved]
  - Off label use [Recovered/Resolved]
  - Expired product administered [Recovered/Resolved]

NARRATIVE: CASE EVENT DATE: 20200625
